FAERS Safety Report 7251251-2 (Version None)
Quarter: 2011Q1

REPORT INFORMATION
  Report Type: 
  Country: None (occurrence: None)
  Receive Date: 20110128
  Receipt Date: 20110119
  Transmission Date: 20110831
  Serious: Yes (Other)
  Sender: FDA-Public Use
  Company Number: CA-CEPHALON-2011000432

PATIENT
  Age: 71 Year
  Sex: Male
  Weight: 136 kg

DRUGS (19)
  1. GLUCOPHAGE [Concomitant]
  2. LUVOX [Suspect]
     Route: 048
  3. CRESTOR [Concomitant]
  4. SYNTHROID [Concomitant]
  5. FLOMAX [Concomitant]
  6. NEURONTIN [Concomitant]
  7. NEXIUM [Concomitant]
  8. ALERTEC [Suspect]
     Route: 048
  9. DETROL LA [Concomitant]
  10. LANTUS [Concomitant]
  11. NOVO-HYDRAZIDE [Concomitant]
  12. RATIO-CLONAZEPAM [Concomitant]
  13. LUVOX [Suspect]
     Route: 048
  14. CELEBREX [Concomitant]
  15. DIOVAN [Concomitant]
  16. DOMPERIDONE [Concomitant]
  17. SPIRIVA [Concomitant]
  18. ASAPHEN [Concomitant]
  19. DIABETA [Concomitant]

REACTIONS (6)
  - DRY MOUTH [None]
  - DRUG PRESCRIBING ERROR [None]
  - OPEN WOUND [None]
  - TOOTH LOSS [None]
  - AMNESIA [None]
  - TONGUE ULCERATION [None]
